FAERS Safety Report 5027668-3 (Version None)
Quarter: 2006Q2

REPORT INFORMATION
  Report Type: 
  Country: None (occurrence: None)
  Receive Date: 20060616
  Receipt Date: 20051026
  Transmission Date: 20061013
  Serious: Yes (Death, Hospitalization)
  Sender: FDA-Public Use
  Company Number: PHBS2005JP15737

PATIENT
  Age: 71 Year
  Sex: Male

DRUGS (3)
  1. CYCLOSPORINE [Suspect]
     Indication: ANAEMIA HAEMOLYTIC AUTOIMMUNE
     Dosage: 100 MG/D
     Route: 048
  2. PREDNISOLONE [Concomitant]
     Indication: ANAEMIA HAEMOLYTIC AUTOIMMUNE
     Dosage: 30 MG/DAY
  3. PREDNISOLONE [Concomitant]
     Dosage: 10 MG/DAY

REACTIONS (29)
  - ANAEMIA HAEMOLYTIC AUTOIMMUNE [None]
  - ARTERIOSPASM CORONARY [None]
  - ATRIAL TACHYCARDIA [None]
  - BLOOD ALKALINE PHOSPHATASE INCREASED [None]
  - BLOOD CREATINE PHOSPHOKINASE INCREASED [None]
  - BLOOD CREATININE INCREASED [None]
  - BLOOD LACTATE DEHYDROGENASE INCREASED [None]
  - BLOOD POTASSIUM INCREASED [None]
  - BLOOD PRESSURE SYSTOLIC DECREASED [None]
  - BLOOD SODIUM DECREASED [None]
  - BLOOD UREA INCREASED [None]
  - C-REACTIVE PROTEIN INCREASED [None]
  - CARDIAC FAILURE [None]
  - CARDIOGENIC SHOCK [None]
  - COAGULATION TEST ABNORMAL [None]
  - CORONARY ARTERY STENOSIS [None]
  - ELECTROCARDIOGRAM ST SEGMENT DEPRESSION [None]
  - ELECTROCARDIOGRAM ST SEGMENT ELEVATION [None]
  - HEPATIC FUNCTION ABNORMAL [None]
  - HYPERCAPNIA [None]
  - HYPOXIA [None]
  - INTRAVASCULAR HAEMOLYSIS [None]
  - MULTI-ORGAN FAILURE [None]
  - ORTHOPNOEA [None]
  - PULMONARY OEDEMA [None]
  - RENAL FAILURE ACUTE [None]
  - SPLENECTOMY [None]
  - TRANSAMINASES INCREASED [None]
  - VENTRICULAR EXTRASYSTOLES [None]
